FAERS Safety Report 6774056-5 (Version None)
Quarter: 2010Q2

REPORT INFORMATION
  Report Type: 
  Country: None (occurrence: None)
  Receive Date: 20100615
  Receipt Date: 20100615
  Transmission Date: 20101027
  Serious: Yes (Other)
  Sender: FDA-Public Use
  Company Number: None

PATIENT
  Sex: Male
  Weight: 67.1324 kg

DRUGS (1)
  1. AZITHROMYCIN [Suspect]
     Indication: OTITIS MEDIA
     Dosage: 2 TABS 1X PER DAY PO
     Route: 048
     Dates: start: 20100611, end: 20100611

REACTIONS (1)
  - DRUG HYPERSENSITIVITY [None]
